FAERS Safety Report 4892066-X (Version None)
Quarter: 2006Q1

REPORT INFORMATION
  Report Type: 
  Country: None (occurrence: None)
  Receive Date: 20060123
  Receipt Date: 20060109
  Transmission Date: 20060701
  Serious: Yes (Hospitalization)
  Sender: FDA-Public Use
  Company Number: 2005173459

PATIENT
  Age: 43 Year
  Sex: Female

DRUGS (1)
  1. MINOXIDIL [Suspect]
     Indication: ALOPECIA
     Dosage: 1 ML TWICE DAILY, TOPICAL
     Route: 061
     Dates: start: 20050405, end: 20050510

REACTIONS (7)
  - AURICULAR SWELLING [None]
  - EAR PRURITUS [None]
  - ECZEMA [None]
  - FACE OEDEMA [None]
  - HEADACHE [None]
  - LOCAL SWELLING [None]
  - SKIN TEST POSITIVE [None]
